FAERS Safety Report 6932312-1 (Version None)
Quarter: 2010Q3

REPORT INFORMATION
  Report Type: 
  Country: None (occurrence: None)
  Receive Date: 20100813
  Receipt Date: 20100527
  Transmission Date: 20110219
  Serious: No
  Sender: FDA-Public Use
  Company Number: 1000014110

PATIENT
  Age: 76 Year
  Sex: Male

DRUGS (11)
  1. SAVELLA [Suspect]
     Indication: FIBROMYALGIA
     Dosage: 12.5 MG (12.5 MG, 1 IN 1 D), ORAL; 25 MG (12.5 MG,2 IN 1 D), ORAL; 50 MG (25 MG,2 IN 1 D), ORAL
     Route: 048
     Dates: start: 20100301, end: 20100301
  2. SAVELLA [Suspect]
     Indication: FIBROMYALGIA
     Dosage: 12.5 MG (12.5 MG, 1 IN 1 D), ORAL; 25 MG (12.5 MG,2 IN 1 D), ORAL; 50 MG (25 MG,2 IN 1 D), ORAL
     Route: 048
     Dates: start: 20100301, end: 20100301
  3. SAVELLA [Suspect]
     Indication: FIBROMYALGIA
     Dosage: 12.5 MG (12.5 MG, 1 IN 1 D), ORAL; 25 MG (12.5 MG,2 IN 1 D), ORAL; 50 MG (25 MG,2 IN 1 D), ORAL
     Route: 048
     Dates: start: 20100301, end: 20100301
  4. SAVELLA [Suspect]
     Indication: FIBROMYALGIA
     Dosage: 12.5 MG 912.5 MG, 1 IN 1 D), ORAL; 25 MG (12.5 MG,2 IN 1 D), ORAL; 50 MG (25 MG,2 IN 1 D), ORAL
     Route: 048
     Dates: start: 20100301, end: 20100301
  5. SAVELLA [Suspect]
     Indication: FIBROMYALGIA
     Dosage: 12.5 MG 912.5 MG, 1 IN 1 D), ORAL; 25 MG (12.5 MG,2 IN 1 D), ORAL; 50 MG (25 MG,2 IN 1 D), ORAL
     Route: 048
     Dates: start: 20100521, end: 20100522
  6. SAVELLA [Suspect]
     Indication: FIBROMYALGIA
     Dosage: 12.5 MG 912.5 MG, 1 IN 1 D), ORAL; 25 MG (12.5 MG,2 IN 1 D), ORAL; 50 MG (25 MG,2 IN 1 D), ORAL
     Route: 048
     Dates: start: 20100523
  7. LISINOPRIL [Concomitant]
  8. ALLOPUINOL [Concomitant]
  9. LASIX [Concomitant]
  10. COREG [Concomitant]
  11. ASPIRIN [Concomitant]

REACTIONS (10)
  - ANXIETY [None]
  - BLOOD PRESSURE DECREASED [None]
  - CONSTIPATION [None]
  - DEPRESSION [None]
  - DIZZINESS [None]
  - ERECTILE DYSFUNCTION [None]
  - FATIGUE [None]
  - INSOMNIA [None]
  - MICTURITION DISORDER [None]
  - URINARY HESITATION [None]
